FAERS Safety Report 17838537 (Version 1)
Quarter: 2020Q2

REPORT INFORMATION
  Report Type: Spontaneous
  Country: TR (occurrence: TR)
  Receive Date: 20200529
  Receipt Date: 20200529
  Transmission Date: 20200714
  Serious: Yes (Other)
  Sender: FDA-Public Use
  Company Number: TR-TEVA-2020-TR-1242024

PATIENT
  Age: 78 Month
  Sex: Female

DRUGS (1)
  1. DEFERASIROX. [Suspect]
     Active Substance: DEFERASIROX
     Indication: BLOOD IRON INCREASED
     Route: 065

REACTIONS (2)
  - Metabolic acidosis [Unknown]
  - Altered state of consciousness [Unknown]
